FAERS Safety Report 4769229-7 (Version None)
Quarter: 2005Q3

REPORT INFORMATION
  Report Type: 
  Country: None (occurrence: None)
  Receive Date: 20050912
  Receipt Date: 20050706
  Transmission Date: 20060218
  Serious: Yes (Life-Threatening, Hospitalization)
  Sender: FDA-Public Use
  Company Number: 2004-00406

PATIENT
  Age: 84 Year
  Sex: Female

DRUGS (2)
  1. VELCADE [Suspect]
     Indication: MULTIPLE MYELOMA
     Dosage: 3.00 MG
     Dates: start: 20040713, end: 20040812
  2. INSULIN [Concomitant]

REACTIONS (2)
  - DIARRHOEA [None]
  - SMALL INTESTINAL OBSTRUCTION [None]
